FAERS Safety Report 14165849 (Version 1)
Quarter: 2017Q4

REPORT INFORMATION
  Report Type: Spontaneous
  Country: NL (occurrence: NL)
  Receive Date: 20171107
  Receipt Date: 20171107
  Transmission Date: 20180321
  Serious: Yes (Hospitalization)
  Sender: FDA-Public Use
  Company Number: NL-TEVA-822872ROM

PATIENT
  Age: 61 Year
  Sex: Female
  Weight: 87 kg

DRUGS (5)
  1. NIFEDIPINE TABLET MGA 30MG [Concomitant]
     Active Substance: NIFEDIPINE
     Dosage: 30 MILLIGRAM DAILY; 1DD30MG MGA
     Route: 048
  2. BISOPROLOL TABLET   5MG [Concomitant]
     Dosage: 5 MILLIGRAM DAILY; 1DD5MG
     Route: 048
  3. GLIMEPIRIDE TABLET 2MG [Concomitant]
     Dosage: 2 MILLIGRAM DAILY; 1DD2MG
     Route: 048
  4. LEVOTHYROXINE TABLET 150UG (NATRIUM) [Concomitant]
     Dosage: 150 MICROGRAM DAILY; 1DD150MCG
     Route: 048
  5. TAMOXIFEN [Suspect]
     Active Substance: TAMOXIFEN
     Indication: BREAST CANCER
     Dosage: 20 MILLIGRAM DAILY; 1X PER DAG 1 STUK
     Route: 048
     Dates: start: 20161201

REACTIONS (2)
  - Thrombophlebitis [Recovering/Resolving]
  - Pulmonary embolism [Recovering/Resolving]

NARRATIVE: CASE EVENT DATE: 20171023
